FAERS Safety Report 13533096 (Version 1)
Quarter: 2017Q2

REPORT INFORMATION
  Report Type: Spontaneous
  Country: US (occurrence: US)
  Receive Date: 20170510
  Receipt Date: 20170510
  Transmission Date: 20170830
  Serious: Yes (Other)
  Sender: FDA-Public Use
  Company Number: US-MYLANLABS-2017M1027985

PATIENT

DRUGS (2)
  1. QUININE [Suspect]
     Active Substance: QUININE
     Indication: MALARIA
     Route: 065
  2. QUININE [Suspect]
     Active Substance: QUININE
     Dosage: EXCESSIVE DOSE
     Route: 065

REACTIONS (8)
  - Blindness [Unknown]
  - Overdose [Unknown]
  - Retinal degeneration [Unknown]
  - Retinal toxicity [Unknown]
  - Retinitis pigmentosa [Unknown]
  - Optic atrophy [Unknown]
  - Retinal vascular disorder [Unknown]
  - Toxicity to various agents [Unknown]
